FAERS Safety Report 4542676-4 (Version None)
Quarter: 2004Q4

REPORT INFORMATION
  Report Type: 
  Country: None (occurrence: None)
  Receive Date: 20041230
  Receipt Date: 20040930
  Transmission Date: 20050328
  Serious: Yes (Hospitalization, Disabling)
  Sender: FDA-Public Use
  Company Number: US-MERCK-0410USA00044

PATIENT
  Age: 28 Year
  Sex: Female
  Weight: 59 kg

DRUGS (18)
  1. VIOXX [Suspect]
     Indication: BACK PAIN
     Route: 048
     Dates: start: 19990101, end: 20031201
  2. VIOXX [Suspect]
     Route: 048
  3. VIOXX [Suspect]
     Indication: ARTHRALGIA
     Route: 048
     Dates: start: 19990101, end: 20031201
  4. VIOXX [Suspect]
     Route: 048
  5. LORTAB [Concomitant]
     Route: 065
  6. KLONOPIN [Concomitant]
     Route: 048
  7. KLONOPIN [Concomitant]
     Route: 048
  8. ELAVIL [Concomitant]
     Route: 048
  9. ELAVIL [Concomitant]
     Route: 048
  10. ZOLOFT [Concomitant]
     Route: 065
  11. PRILOSEC [Concomitant]
     Route: 048
  12. FIORINAL [Concomitant]
     Route: 065
  13. SERZONE [Concomitant]
     Route: 065
     Dates: start: 19980101
  14. VICODIN [Concomitant]
     Route: 065
     Dates: start: 19980101
  15. ACETAMINOPHEN [Concomitant]
     Route: 065
     Dates: start: 19940101
  16. NAPROSYN [Concomitant]
     Route: 065
     Dates: start: 19940101
  17. ASPIRIN [Concomitant]
     Route: 065
     Dates: start: 19940101
  18. ADVIL [Concomitant]
     Route: 065
     Dates: start: 19940101

REACTIONS (20)
  - ACCIDENTAL OVERDOSE [None]
  - ANAEMIA [None]
  - ANXIETY [None]
  - ASTHENIA [None]
  - CEREBROVASCULAR ACCIDENT [None]
  - CHRONIC FATIGUE SYNDROME [None]
  - DEPRESSION [None]
  - DYSPHAGIA [None]
  - GASTROENTERITIS [None]
  - HEADACHE [None]
  - HYPOKALAEMIA [None]
  - HYPOMAGNESAEMIA [None]
  - JOINT SWELLING [None]
  - NERVOUS SYSTEM DISORDER [None]
  - OVERDOSE [None]
  - PANIC ATTACK [None]
  - RENAL FAILURE [None]
  - SLEEP APNOEA SYNDROME [None]
  - SNORING [None]
  - VISUAL DISTURBANCE [None]
